FAERS Safety Report 21607885 (Version 3)
Quarter: 2023Q1

REPORT INFORMATION
  Report Type: Spontaneous
  Country: TR (occurrence: TR)
  Receive Date: 20221117
  Receipt Date: 20230130
  Transmission Date: 20230418
  Serious: Yes (Death, Life-Threatening, Hospitalization, Other)
  Sender: FDA-Public Use
  Company Number: None

PATIENT
  Age: 53 Year
  Sex: Female

DRUGS (2)
  1. PREDNISOLONE [Suspect]
     Active Substance: PREDNISOLONE
     Indication: Pemphigus
     Dosage: 10 MILLIGRAM PER DAY
     Route: 048
  2. INSULIN NOS [Concomitant]
     Active Substance: INSULIN NOS
     Indication: Type 2 diabetes mellitus
     Dosage: UNK
     Route: 065

REACTIONS (7)
  - Necrotising fasciitis [Fatal]
  - Pseudoparalysis [Fatal]
  - Post procedural complication [Fatal]
  - Klebsiella infection [Fatal]
  - Pneumonia klebsiella [Fatal]
  - Acute kidney injury [Fatal]
  - Postoperative wound infection [Fatal]
